FAERS Safety Report 6781110-0 (Version None)
Quarter: 2010Q2

REPORT INFORMATION
  Report Type: 
  Country: None (occurrence: None)
  Receive Date: 20100621
  Receipt Date: 20100609
  Transmission Date: 20101027
  Serious: Yes (Hospitalization)
  Sender: FDA-Public Use
  Company Number: CA-BRISTOL-MYERS SQUIBB COMPANY-15004278

PATIENT
  Age: 82 Year
  Sex: Female

DRUGS (1)
  1. ORENCIA [Suspect]
     Indication: RHEUMATOID ARTHRITIS
     Dosage: 8 INF(5,17AUG,3,29SEP,30OCT,9DEC09;08JAN10);LAST INFUSION ON 05-FEB-2010
     Route: 042
     Dates: start: 20090805

REACTIONS (5)
  - CONTUSION [None]
  - FALL [None]
  - IMPAIRED HEALING [None]
  - POOR PERIPHERAL CIRCULATION [None]
  - WOUND INFECTION [None]
